FAERS Safety Report 21239583 (Version 1)
Quarter: 2022Q3

REPORT INFORMATION
  Report Type: Spontaneous
  Country: US (occurrence: None)
  Receive Date: 20220820
  Receipt Date: 20220820
  Transmission Date: 20221026
  Serious: Yes (Disabling)
  Sender: FDA-Public Use
  Company Number: None

PATIENT
  Age: 5 Year
  Sex: Male
  Weight: 21.6 kg

DRUGS (3)
  1. MIRALAX [Suspect]
     Active Substance: POLYETHYLENE GLYCOL 3350
     Indication: Constipation
     Dates: start: 20210606, end: 20211112
  2. OXYBUTYNIN [Concomitant]
     Active Substance: OXYBUTYNIN
  3. MULTIVITAMIN [Concomitant]

REACTIONS (4)
  - Anxiety [None]
  - Mood altered [None]
  - Eye movement disorder [None]
  - Dyskinesia [None]
